FAERS Safety Report 9344545 (Version 3)
Quarter: 2013Q3

REPORT INFORMATION
  Report Type: Spontaneous
  Country: US (occurrence: US)
  Receive Date: 20130612
  Receipt Date: 20130723
  Transmission Date: 20140515
  Serious: Yes (Hospitalization)
  Sender: FDA-Public Use
  Company Number: US-GILEAD-2013-0076788

PATIENT
  Sex: Female

DRUGS (3)
  1. LETAIRIS [Suspect]
     Indication: PULMONARY HYPERTENSION
     Dosage: 10 MG, QD
     Dates: start: 20130430
  2. LETAIRIS [Suspect]
     Indication: SCLERODERMA
     Dosage: 10 MG, QD
  3. REVATIO [Concomitant]

REACTIONS (3)
  - Pneumonia [Recovering/Resolving]
  - Local swelling [Unknown]
  - Nasal congestion [Unknown]
